FAERS Safety Report 16840890 (Version 1)
Quarter: 2019Q3

REPORT INFORMATION
  Report Type: Spontaneous
  Country: US (occurrence: US)
  Receive Date: 20190923
  Receipt Date: 20190923
  Transmission Date: 20191005
  Serious: No
  Sender: FDA-Public Use
  Company Number: US-JNJFOC-20190928618

PATIENT
  Age: 72 Year
  Sex: Male

DRUGS (4)
  1. SENNA                              /00142201/ [Concomitant]
     Active Substance: SENNA LEAF
  2. IMBRUVICA [Suspect]
     Active Substance: IBRUTINIB
     Indication: CHRONIC LYMPHOCYTIC LEUKAEMIA
     Dosage: 280 MG, UNK
     Route: 048
     Dates: start: 20190913
  3. PLAVIX [Concomitant]
     Active Substance: CLOPIDOGREL BISULFATE
  4. DOXYCYCLINE. [Concomitant]
     Active Substance: DOXYCYCLINE

REACTIONS (2)
  - Eye oedema [Not Recovered/Not Resolved]
  - Joint effusion [Not Recovered/Not Resolved]

NARRATIVE: CASE EVENT DATE: 20190916
